FAERS Safety Report 14985204 (Version 1)
Quarter: 2018Q2

REPORT INFORMATION
  Report Type: Spontaneous
  Country: US (occurrence: US)
  Receive Date: 20180518
  Receipt Date: 20180518
  Transmission Date: 20180711
  Serious: Yes (Life-Threatening, Hospitalization, Disabling, Other)
  Sender: FDA-Public Use
  Company Number: None

PATIENT
  Age: 71 Year
  Sex: Female
  Weight: 57.6 kg

DRUGS (11)
  1. DOXYCYCLINE. [Suspect]
     Active Substance: DOXYCYCLINE
     Indication: OSTEOMYELITIS
     Dosage: ?          QUANTITY:1 DF DOSAGE FORM;?
     Route: 048
  2. LIPITOR [Concomitant]
     Active Substance: ATORVASTATIN CALCIUM
  3. TYLENOL WITH CODEINE [Concomitant]
     Active Substance: ACETAMINOPHEN\CODEINE PHOSPHATE
  4. XANAX [Concomitant]
     Active Substance: ALPRAZOLAM
  5. ICEY HOT [Concomitant]
  6. ALDACTONE [Concomitant]
     Active Substance: SPIRONOLACTONE
  7. NAPROXEN. [Concomitant]
     Active Substance: NAPROXEN
  8. CYMBALTA [Concomitant]
     Active Substance: DULOXETINE HYDROCHLORIDE
  9. STOOL SOFTER [Concomitant]
  10. LASIX [Concomitant]
     Active Substance: FUROSEMIDE
  11. REMERON [Concomitant]
     Active Substance: MIRTAZAPINE

REACTIONS (14)
  - Hypotension [None]
  - Mental disorder [None]
  - Multiple organ dysfunction syndrome [None]
  - Drug ineffective [None]
  - Pneumonia [None]
  - Decreased appetite [None]
  - Constipation [None]
  - Drug resistance [None]
  - Septic shock [None]
  - Abdominal pain [None]
  - Oral candidiasis [None]
  - Muscle tightness [None]
  - Renal disorder [None]
  - Malaise [None]

NARRATIVE: CASE EVENT DATE: 20171213
